FAERS Safety Report 10432340 (Version 2)
Quarter: 2019Q3

REPORT INFORMATION
  Report Type: Spontaneous
  Country: FR (occurrence: FR)
  Receive Date: 20140905
  Receipt Date: 20190827
  Transmission Date: 20191004
  Serious: Yes (Death, Hospitalization, Other)
  Sender: FDA-Public Use
  Company Number: FR-ROCHE-1457357

PATIENT
  Age: 64 Year
  Sex: Female

DRUGS (35)
  1. TRAMADOL. [Concomitant]
     Active Substance: TRAMADOL
     Route: 065
     Dates: start: 20130916
  2. CORTANCYL [Concomitant]
     Active Substance: PREDNISONE
     Route: 065
     Dates: start: 20130916
  3. CACIT [CALCIUM CARBONATE] [Concomitant]
     Active Substance: CALCIUM CARBONATE
     Indication: PRODUCT USED FOR UNKNOWN INDICATION
     Dosage: 500 MILLIGRAM
     Route: 065
  4. FLAGYL [Suspect]
     Active Substance: METRONIDAZOLE\METRONIDAZOLE HYDROCHLORIDE
     Indication: COLITIS
     Route: 048
     Dates: start: 20140225, end: 20140228
  5. FLAGYL [Suspect]
     Active Substance: METRONIDAZOLE\METRONIDAZOLE HYDROCHLORIDE
     Route: 048
     Dates: start: 20140303, end: 20140312
  6. CORTANCYL [Concomitant]
     Active Substance: PREDNISONE
     Route: 065
     Dates: start: 20130909, end: 20130915
  7. CORTANCYL [Concomitant]
     Active Substance: PREDNISONE
     Dosage: 30 MILLIGRAM
     Route: 065
     Dates: start: 20130826, end: 20130901
  8. OGASTORO [Concomitant]
     Active Substance: LANSOPRAZOLE
     Indication: PRODUCT USED FOR UNKNOWN INDICATION
     Route: 065
  9. PANFUREX [Concomitant]
     Active Substance: NIFUROXAZIDE
     Indication: PRODUCT USED FOR UNKNOWN INDICATION
     Route: 065
  10. VIDAZA [Suspect]
     Active Substance: AZACITIDINE
     Route: 058
     Dates: start: 20131114, end: 20131117
  11. TRAMADOL. [Concomitant]
     Active Substance: TRAMADOL
     Dosage: 30 MILLIGRAM
     Route: 065
     Dates: start: 20130826, end: 20130901
  12. CORTANCYL [Concomitant]
     Active Substance: PREDNISONE
     Indication: PRODUCT USED FOR UNKNOWN INDICATION
     Route: 065
     Dates: start: 20130902, end: 20130908
  13. OXYCONTIN [Concomitant]
     Active Substance: OXYCODONE HYDROCHLORIDE
     Indication: PRODUCT USED FOR UNKNOWN INDICATION
     Dosage: 20 MILLIGRAM
     Route: 065
  14. VIDAZA [Suspect]
     Active Substance: AZACITIDINE
     Route: 058
     Dates: start: 20140227, end: 20140304
  15. TRAMADOL. [Concomitant]
     Active Substance: TRAMADOL
     Route: 065
     Dates: start: 20130902, end: 20130908
  16. OXYCONTIN [Concomitant]
     Active Substance: OXYCODONE HYDROCHLORIDE
     Dosage: 15 MILLIGRAM
     Route: 065
  17. FLAGYL [Suspect]
     Active Substance: METRONIDAZOLE\METRONIDAZOLE HYDROCHLORIDE
     Route: 048
     Dates: start: 20140414, end: 20140428
  18. VIDAZA [Suspect]
     Active Substance: AZACITIDINE
     Indication: MYELODYSPLASTIC SYNDROME
     Route: 058
     Dates: start: 20130930, end: 20131114
  19. TAZOCILLINE [Suspect]
     Active Substance: PIPERACILLIN SODIUM\TAZOBACTAM SODIUM
     Indication: ESCHERICHIA INFECTION
     Route: 041
     Dates: start: 20140228, end: 20140310
  20. TRAMADOL. [Concomitant]
     Active Substance: TRAMADOL
     Indication: PRODUCT USED FOR UNKNOWN INDICATION
     Route: 065
     Dates: start: 20130909, end: 20130915
  21. CORTANCYL [Concomitant]
     Active Substance: PREDNISONE
     Route: 065
  22. ACTISKENAN [Concomitant]
     Active Substance: MORPHINE SULFATE
     Indication: RHEUMATOID ARTHRITIS
     Route: 065
     Dates: start: 20131005
  23. ROCEPHINE [Suspect]
     Active Substance: CEFTRIAXONE SODIUM
     Route: 051
     Dates: start: 201311, end: 201311
  24. TRAMADOL. [Concomitant]
     Active Substance: TRAMADOL
     Dosage: 800 MILLIGRAM
     Route: 065
  25. OXYCONTIN [Concomitant]
     Active Substance: OXYCODONE HYDROCHLORIDE
     Dosage: 10 MILLIGRAM
     Route: 065
  26. ROCEPHINE [Suspect]
     Active Substance: CEFTRIAXONE SODIUM
     Indication: COLITIS
     Route: 051
     Dates: start: 20140225, end: 20140228
  27. ROCEPHINE [Suspect]
     Active Substance: CEFTRIAXONE SODIUM
     Route: 051
     Dates: start: 201310, end: 20131111
  28. ZYVOXID [Suspect]
     Active Substance: LINEZOLID
     Indication: STAPHYLOCOCCAL BACTERAEMIA
     Route: 041
     Dates: start: 20140303, end: 20140312
  29. ENDOTELON [Concomitant]
     Active Substance: HERBALS\VITIS VINIFERA LEAF
     Indication: PRODUCT USED FOR UNKNOWN INDICATION
     Route: 065
  30. ESOMEPRAZOLE. [Concomitant]
     Active Substance: ESOMEPRAZOLE MAGNESIUM
     Indication: PRODUCT USED FOR UNKNOWN INDICATION
     Dosage: 20 MILLIGRAM
     Route: 065
  31. MEBEVERINE [Concomitant]
     Active Substance: MEBEVERINE
     Indication: PRODUCT USED FOR UNKNOWN INDICATION
     Dosage: 400 GRAM
     Route: 065
  32. ROCEPHINE [Suspect]
     Active Substance: CEFTRIAXONE SODIUM
     Route: 051
     Dates: start: 20140414, end: 20140428
  33. TAZOCILLINE [Suspect]
     Active Substance: PIPERACILLIN SODIUM\TAZOBACTAM SODIUM
     Indication: COLITIS
  34. LAMALINE (ACETAMINOPHEN\CAFFEINE\OPIUM) [Concomitant]
     Active Substance: ACETAMINOPHEN\CAFFEINE\OPIUM
     Indication: PRODUCT USED FOR UNKNOWN INDICATION
     Route: 065
  35. SKENAN [Concomitant]
     Active Substance: MORPHINE SULFATE
     Indication: RHEUMATOID ARTHRITIS
     Route: 065
     Dates: start: 20131005

REACTIONS (16)
  - Pancytopenia [Fatal]
  - Arthritis [Unknown]
  - Injection site haematoma [Unknown]
  - Abscess intestinal [Unknown]
  - Colitis [Fatal]
  - Constipation [Unknown]
  - Fall [Unknown]
  - Escherichia sepsis [Fatal]
  - Clostridium difficile infection [Unknown]
  - Diverticulitis [Fatal]
  - Phlebitis [Unknown]
  - Anaemia [Unknown]
  - Staphylococcal infection [Unknown]
  - Subarachnoid haemorrhage [Unknown]
  - Encephalopathy [Fatal]
  - Myelitis [Unknown]

NARRATIVE: CASE EVENT DATE: 20131012
